FAERS Safety Report 4864261-7 (Version None)
Quarter: 2005Q4

REPORT INFORMATION
  Report Type: 
  Country: None (occurrence: None)
  Receive Date: 20051222
  Receipt Date: 20051219
  Transmission Date: 20060501
  Serious: Yes (Other)
  Sender: FDA-Public Use
  Company Number: 2005AC01996

PATIENT
  Age: 52 Year
  Sex: Female
  Weight: 62.7 kg

DRUGS (3)
  1. TAMOXIFEN [Suspect]
     Indication: PROPHYLAXIS
  2. TAMOXIFEN [Interacting]
  3. PHENYTOIN [Interacting]
     Indication: EPILEPSY

REACTIONS (2)
  - CONVULSION [None]
  - DRUG INTERACTION [None]
